FAERS Safety Report 7402428-4 (Version None)
Quarter: 2011Q2

REPORT INFORMATION
  Report Type: 
  Country: None (occurrence: None)
  Receive Date: 20110408
  Receipt Date: 20110330
  Transmission Date: 20111010
  Serious: Yes (Other)
  Sender: FDA-Public Use
  Company Number: PHHY2011US22451

PATIENT
  Sex: Female
  Weight: 62.132 kg

DRUGS (5)
  1. FLONASE [Concomitant]
  2. LUPRON [Suspect]
     Indication: ENDOMETRIOSIS
     Dosage: UNK
     Dates: start: 20101101
  3. VIVELLE-DOT [Suspect]
     Dosage: 0.1 MG, BIW
     Route: 062
  4. FLAXSEED OIL [Concomitant]
  5. VITAMINS [Concomitant]

REACTIONS (3)
  - FALL [None]
  - CLAVICLE FRACTURE [None]
  - OSTEOPOROSIS [None]
